FAERS Safety Report 12973207 (Version 2)
Quarter: 2017Q2

REPORT INFORMATION
  Report Type: Spontaneous
  Country: US (occurrence: US)
  Receive Date: 20161124
  Receipt Date: 20170505
  Transmission Date: 20170830
  Serious: Yes (Hospitalization, Other)
  Sender: FDA-Public Use
  Company Number: US-WEST-WARD PHARMACEUTICALS CORP.-US-H14001-16-02542

PATIENT
  Age: 2 Year
  Sex: Male

DRUGS (1)
  1. MIDAZOLAM [Suspect]
     Active Substance: MIDAZOLAM HYDROCHLORIDE
     Indication: PRODUCT USED FOR UNKNOWN INDICATION
     Route: 065

REACTIONS (7)
  - Strabismus [Recovered/Resolved]
  - Papilloedema [Recovered/Resolved]
  - Depressed level of consciousness [Recovered/Resolved]
  - Hydrocephalus [Recovered/Resolved]
  - Condition aggravated [Recovered/Resolved]
  - Bradycardia [Unknown]
  - Intracranial pressure increased [Recovered/Resolved]
